FAERS Safety Report 5987050-9 (Version None)
Quarter: 2008Q4

REPORT INFORMATION
  Report Type: 
  Country: None (occurrence: None)
  Receive Date: 20081201
  Receipt Date: 20081118
  Transmission Date: 20090506
  Serious: No
  Sender: FDA-Public Use
  Company Number: WSDF_00769

PATIENT

DRUGS (1)
  1. WINRHO SDF [Suspect]
     Indication: IDIOPATHIC THROMBOCYTOPENIC PURPURA
     Dosage: 50 UG/KG ONCE

REACTIONS (2)
  - HAEMOGLOBIN DECREASED [None]
  - INTRAVASCULAR HAEMOLYSIS [None]
